FAERS Safety Report 7105093-9 (Version None)
Quarter: 2010Q4

REPORT INFORMATION
  Report Type: 
  Country: None (occurrence: None)
  Receive Date: 20101110
  Receipt Date: 20101026
  Transmission Date: 20110411
  Serious: Yes (Hospitalization)
  Sender: FDA-Public Use
  Company Number: 2010004606

PATIENT
  Sex: Male
  Weight: 71.3962 kg

DRUGS (19)
  1. ERLOTINIB (ERLOTINIB) (TABLET) (ERLOTINIB) [Suspect]
     Indication: LUNG NEOPLASM MALIGNANT
     Dosage: ORAL
     Route: 048
     Dates: start: 20100910
  2. PAZOPANIB/PLACEBO [Suspect]
     Indication: LUNG NEOPLASM MALIGNANT
     Dates: start: 20100910
  3. AMBIEN [Concomitant]
  4. CALCIUM CARBONATE [Concomitant]
  5. COMPAZINE [Concomitant]
  6. DOXYCYCLINE [Concomitant]
  7. LEUCOVORIN CALCIUM [Concomitant]
  8. KLACKS [Concomitant]
  9. LORTAB (VICODIN) [Concomitant]
  10. LUNESTA [Concomitant]
  11. MEGACE [Concomitant]
  12. TUSSINEX [Concomitant]
  13. ZOFRAN [Concomitant]
  14. BENICAR [Concomitant]
  15. FLOMAX [Concomitant]
  16. KADIAN [Concomitant]
  17. LYRICA [Concomitant]
  18. SANCTURA [Concomitant]
  19. SIMVASTATIN [Concomitant]

REACTIONS (2)
  - PNEUMONIA [None]
  - PULMONARY EMBOLISM [None]
